FAERS Safety Report 22741377 (Version 4)
Quarter: 2023Q4

REPORT INFORMATION
  Report Type: Report from Study
  Country: US (occurrence: US)
  Receive Date: 20230724
  Receipt Date: 20231022
  Transmission Date: 20240109
  Serious: No
  Sender: FDA-Public Use
  Company Number: US-002147023-NVSC2023US162112

PATIENT
  Sex: Female

DRUGS (1)
  1. COSENTYX [Suspect]
     Active Substance: SECUKINUMAB
     Indication: Psoriasis
     Dosage: 300 MG, QMO (FOR 3 YEARS )
     Route: 058

REACTIONS (9)
  - Migraine [Unknown]
  - Gastrointestinal disorder [Unknown]
  - Onychomycosis [Unknown]
  - Psoriasis [Recovering/Resolving]
  - Skin exfoliation [Recovering/Resolving]
  - Skin plaque [Recovering/Resolving]
  - Papule [Unknown]
  - Guttate psoriasis [Unknown]
  - Therapeutic product effect incomplete [Unknown]
